FAERS Safety Report 4373200-7 (Version None)
Quarter: 2004Q2

REPORT INFORMATION
  Report Type: 
  Country: None (occurrence: None)
  Receive Date: 20040603
  Receipt Date: 20040518
  Transmission Date: 20050107
  Serious: Yes (Hospitalization)
  Sender: FDA-Public Use
  Company Number: USA040465968

PATIENT
  Age: 83 Year
  Sex: Female

DRUGS (4)
  1. FORTEO [Suspect]
     Indication: FALL
     Dosage: 20 UG/1 DAY
     Dates: start: 20020201
  2. FORTEO [Suspect]
     Indication: OSTEOPOROSIS
     Dosage: 20 UG/1 DAY
     Dates: start: 20020201
  3. FORTEO [Suspect]
     Indication: SPINAL FRACTURE
     Dosage: 20 UG/1 DAY
     Dates: start: 20020201
  4. FOSAMAX [Concomitant]

REACTIONS (2)
  - CELLULITIS [None]
  - FALL [None]
